FAERS Safety Report 16110130 (Version 3)
Quarter: 2019Q2

REPORT INFORMATION
  Report Type: Spontaneous
  Country: HK (occurrence: HK)
  Receive Date: 20190325
  Receipt Date: 20190426
  Transmission Date: 20190711
  Serious: Yes (Hospitalization, Other)
  Sender: FDA-Public Use
  Company Number: HK-BEH-2019100557

PATIENT
  Age: 17 Year
  Sex: Female
  Weight: 47 kg

DRUGS (3)
  1. AMISULPRIDE [Concomitant]
     Active Substance: AMISULPRIDE
     Indication: PSYCHOTIC DISORDER
     Dosage: 100 MG, OD/NOCTE
     Route: 048
     Dates: start: 20190315
  2. IBUPROFEN. [Concomitant]
     Active Substance: IBUPROFEN
     Indication: PAIN
     Dosage: 200 MG, TID/Q8H, PRN
     Route: 048
     Dates: start: 20190315
  3. PRIVIGEN [Suspect]
     Active Substance: HUMAN IMMUNOGLOBULIN G
     Indication: HYPOGAMMAGLOBULINAEMIA
     Dosage: 40 G, SINGLE/ONCE, 67 ML/HR
     Route: 042
     Dates: start: 20190314, end: 20190314

REACTIONS (3)
  - Hepatitis [Recovering/Resolving]
  - Hepatic enzyme increased [Recovering/Resolving]
  - Suspected transmission of an infectious agent via product [Recovering/Resolving]

NARRATIVE: CASE EVENT DATE: 20190315
